FAERS Safety Report 15489674 (Version 2)
Quarter: 2018Q4

REPORT INFORMATION
  Report Type: Report from Study
  Country: None (occurrence: BE)
  Receive Date: 20181011
  Receipt Date: 20181015
  Transmission Date: 20190205
  Serious: Yes (Hospitalization)
  Sender: FDA-Public Use
  Company Number: BE-ABBVIE-18S-013-2514243-00

PATIENT
  Sex: Female

DRUGS (3)
  1. DUODOPA [Suspect]
     Active Substance: CARBIDOPA\LEVODOPA
     Dosage: DOSES CONTINUOUSLY MONITORED AND ADAPTED
     Route: 050
     Dates: start: 20100525, end: 20180523
  2. DUODOPA [Suspect]
     Active Substance: CARBIDOPA\LEVODOPA
     Indication: PARKINSON^S DISEASE
     Dosage: MD=11ML CD=3.4ML/HR DURING 16HRS  ED=4ML
     Route: 050
     Dates: start: 20100322, end: 20100525
  3. DUODOPA [Suspect]
     Active Substance: CARBIDOPA\LEVODOPA
     Dosage: MD=11ML CD=4.2ML/HR DURING 16HRS  ED=4ML
     Route: 050
     Dates: start: 20180523

REACTIONS (2)
  - Fall [Recovered/Resolved]
  - Hip surgery [Unknown]
